FAERS Safety Report 10265285 (Version 2)
Quarter: 2019Q4

REPORT INFORMATION
  Report Type: Spontaneous
  Country: GB (occurrence: GB)
  Receive Date: 20140627
  Receipt Date: 20191007
  Transmission Date: 20200122
  Serious: Yes (Other)
  Sender: FDA-Public Use
  Company Number: GB-MYLANLABS-2014S1014191

PATIENT
  Sex: Male

DRUGS (1)
  1. METFORMIN [Suspect]
     Active Substance: METFORMIN HYDROCHLORIDE
     Indication: TYPE 2 DIABETES MELLITUS
     Dosage: UNK UNK, MONTHLY
     Route: 065

REACTIONS (4)
  - Diabetes mellitus inadequate control [Unknown]
  - Therapeutic product effect decreased [Unknown]
  - Hypoglycaemia [Unknown]
  - Inappropriate schedule of product administration [Unknown]
